FAERS Safety Report 15876791 (Version 2)
Quarter: 2020Q1

REPORT INFORMATION
  Report Type: Report from Study
  Country: None (occurrence: US)
  Receive Date: 20190127
  Receipt Date: 20200220
  Transmission Date: 20200409
  Serious: Yes (Hospitalization, Other)
  Sender: FDA-Public Use
  Company Number: US-ABBVIE-18K-163-2372526-00

PATIENT
  Age: 72 Year
  Sex: Female
  Weight: 59.02 kg

DRUGS (23)
  1. EZETIMIBE. [Concomitant]
     Active Substance: EZETIMIBE
     Indication: PRODUCT USED FOR UNKNOWN INDICATION
     Dosage: 1 TAB BED TIME
  2. FISH OIL [Concomitant]
     Active Substance: FISH OIL
     Indication: PRODUCT USED FOR UNKNOWN INDICATION
     Dosage: 1000MG STRENGTH/300OMEGA3. TAKE ONE CAPSULE EACH MORNING WITH BREAKFAST
  3. NORCO [Concomitant]
     Active Substance: ACETAMINOPHEN\HYDROCODONE BITARTRATE
     Indication: PRODUCT USED FOR UNKNOWN INDICATION
     Dosage: 75MG/325MG
  4. ASPIRIN. [Concomitant]
     Active Substance: ASPIRIN
     Indication: CARDIAC DISORDER
     Dosage: MORNING 1 TABLET
     Dates: end: 20190711
  5. LYRICA [Concomitant]
     Active Substance: PREGABALIN
     Indication: RHEUMATOID ARTHRITIS
  6. VYTORIN [Concomitant]
     Active Substance: EZETIMIBE\SIMVASTATIN
     Indication: PRODUCT USED FOR UNKNOWN INDICATION
     Dosage: 1 TAB BED TIME
     Dates: end: 20190711
  7. BIOTIN [Concomitant]
     Active Substance: BIOTIN
     Indication: HAIR DISORDER
     Dosage: 1 TABLET IN MORNING
  8. HUMIRA [Suspect]
     Active Substance: ADALIMUMAB
     Route: 058
     Dates: end: 20190711
  9. LISINOPRIL. [Concomitant]
     Active Substance: LISINOPRIL
     Indication: HYPERTENSION
     Dosage: HALF TABLET IN MORNING
     Dates: end: 20190711
  10. LYRICA [Concomitant]
     Active Substance: PREGABALIN
     Indication: NEURALGIA
     Dosage: IN EVENING
     Dates: end: 20190711
  11. XALATAN [Concomitant]
     Active Substance: LATANOPROST
     Indication: GLAUCOMA
     Dosage: EYE DROP FOR LEFT EYE IN EVENING
     Dates: end: 20190711
  12. BIOTIN [Concomitant]
     Active Substance: BIOTIN
     Indication: NAIL DISORDER
  13. FOLIC ACID. [Concomitant]
     Active Substance: FOLIC ACID
     Indication: SJOGREN^S SYNDROME
     Dosage: EVERY MORNING
  14. RESTASIS [Concomitant]
     Active Substance: CYCLOSPORINE
     Indication: SJOGREN^S SYNDROME
     Dosage: EYE DROP. DROP IN BOTH EYES
     Dates: end: 20190711
  15. ACTONEL [Concomitant]
     Active Substance: RISEDRONATE SODIUM
     Indication: BONE DISORDER
     Dosage: ONCE MONTH
  16. CIPRO [Concomitant]
     Active Substance: CIPROFLOXACIN HYDROCHLORIDE
     Indication: PRODUCT USED FOR UNKNOWN INDICATION
  17. VITAMIN D3 [Concomitant]
     Active Substance: CHOLECALCIFEROL
     Indication: BONE DISORDER
     Dosage: MORNING 1 TABLET
  18. HUMIRA [Suspect]
     Active Substance: ADALIMUMAB
     Indication: RHEUMATOID ARTHRITIS
     Route: 058
     Dates: start: 201603
  19. HUMIRA [Suspect]
     Active Substance: ADALIMUMAB
     Dosage: DOSE DOUBLED UP
     Route: 058
  20. VITAMIN B12 [Concomitant]
     Active Substance: CYANOCOBALAMIN
     Indication: BLOOD IRON DECREASED
     Dosage: EVERY MORNING
  21. LYRICA [Concomitant]
     Active Substance: PREGABALIN
     Indication: IMMUNODEFICIENCY
  22. THERACRAN [Concomitant]
     Indication: PRODUCT USED FOR UNKNOWN INDICATION
  23. LYRICA [Concomitant]
     Active Substance: PREGABALIN
     Indication: ARTHRALGIA

REACTIONS (15)
  - Nephrolithiasis [Recovered/Resolved]
  - Bladder discomfort [Unknown]
  - Nephrolithiasis [Recovered/Resolved]
  - Energy increased [Unknown]
  - Blood pressure increased [Unknown]
  - Musculoskeletal stiffness [Unknown]
  - Therapeutic response shortened [Unknown]
  - Bronchitis [Unknown]
  - Fatigue [Unknown]
  - Bladder obstruction [Unknown]
  - Temperature intolerance [Unknown]
  - Pharyngeal erythema [Unknown]
  - Bladder pain [Unknown]
  - Blood phosphorus decreased [Unknown]
  - Arthralgia [Unknown]

NARRATIVE: CASE EVENT DATE: 2018
